FAERS Safety Report 4486781-X (Version None)
Quarter: 2004Q4

REPORT INFORMATION
  Report Type: 
  Country: None (occurrence: None)
  Receive Date: 20041027
  Receipt Date: 20030605
  Transmission Date: 20050328
  Serious: Yes (Disabling, Other)
  Sender: FDA-Public Use
  Company Number: US-MERCK-0306USA00874

PATIENT
  Age: 45 Year
  Sex: Male

DRUGS (1)
  1. VIOXX [Suspect]
     Route: 048

REACTIONS (9)
  - ADVERSE EVENT [None]
  - BLOOD CHOLESTEROL INCREASED [None]
  - DIARRHOEA [None]
  - EXOSTOSIS [None]
  - HYPERTENSION [None]
  - MONARTHRITIS [None]
  - ROTATOR CUFF SYNDROME [None]
  - SYNOVIAL DISORDER [None]
  - THORACIC VERTEBRA INJURY [None]
